FAERS Safety Report 6465329-4 (Version None)
Quarter: 2009Q4

REPORT INFORMATION
  Report Type: 
  Country: None (occurrence: None)
  Receive Date: 20091201
  Receipt Date: 20090615
  Transmission Date: 20100525
  Serious: No
  Sender: FDA-Public Use
  Company Number: US-AMGEN-KDL274937

PATIENT
  Sex: Male

DRUGS (2)
  1. ENBREL [Suspect]
     Indication: RHEUMATOID ARTHRITIS
     Route: 058
     Dates: start: 20071201, end: 20080401
  2. PLAQUENIL [Concomitant]
     Dates: start: 20071201

REACTIONS (6)
  - BONE DENSITY DECREASED [None]
  - BONE PAIN [None]
  - DRUG EFFECT DECREASED [None]
  - FATIGUE [None]
  - RHEUMATOID ARTHRITIS [None]
  - TOOTH ABSCESS [None]
